FAERS Safety Report 12990131 (Version 1)
Quarter: 2016Q4

REPORT INFORMATION
  Report Type: Spontaneous
  Country: US (occurrence: US)
  Receive Date: 20161201
  Receipt Date: 20161201
  Transmission Date: 20170207
  Serious: No
  Sender: FDA-Public Use
  Company Number: US-WARNER CHILCOTT, LLC-1060278

PATIENT
  Age: 17 Year

DRUGS (1)
  1. LO LOESTRIN FE [Suspect]
     Active Substance: ETHINYL ESTRADIOL\NORETHINDRONE ACETATE
     Indication: MENSTRUAL DISORDER
     Route: 048
     Dates: start: 201606

REACTIONS (2)
  - Metrorrhagia [Unknown]
  - Product use issue [None]

NARRATIVE: CASE EVENT DATE: 201606
